FAERS Safety Report 7404299-9 (Version None)
Quarter: 2011Q2

REPORT INFORMATION
  Report Type: 
  Country: None (occurrence: None)
  Receive Date: 20110408
  Receipt Date: 20110404
  Transmission Date: 20111010
  Serious: Yes (Hospitalization)
  Sender: FDA-Public Use
  Company Number: US-GENZYME-FABR-1001876

PATIENT
  Sex: Male
  Weight: 57.9 kg

DRUGS (3)
  1. FABRAZYME [Suspect]
     Indication: FABRY'S DISEASE
     Dosage: 70 MG, Q2W
     Route: 042
     Dates: start: 20090101
  2. CELLCEPT [Concomitant]
     Indication: RENAL TRANSPLANT
  3. PROGRAF [Concomitant]
     Indication: RENAL TRANSPLANT

REACTIONS (1)
  - RENAL DISORDER [None]
